FAERS Safety Report 24382230 (Version 2)
Quarter: 2024Q4

REPORT INFORMATION
  Report Type: Spontaneous
  Country: US (occurrence: US)
  Receive Date: 20241001
  Receipt Date: 20241031
  Transmission Date: 20250114
  Serious: No
  Sender: BLUEPRINT MEDICINES
  Company Number: US-Blueprint Medicines Corporation-4881

PATIENT
  Age: 73 Year
  Sex: Male

DRUGS (1)
  1. AYVAKIT [Suspect]
     Active Substance: AVAPRITINIB
     Indication: Metastasis
     Route: 048
     Dates: start: 20240817, end: 202410

REACTIONS (8)
  - Insomnia [Unknown]
  - Fatigue [Unknown]
  - Respiratory tract congestion [Unknown]
  - Productive cough [Unknown]
  - Periorbital swelling [Unknown]
  - Lacrimation increased [Unknown]
  - Adverse drug reaction [Unknown]
  - Off label use [Unknown]

NARRATIVE: CASE EVENT DATE: 20240817
